FAERS Safety Report 5145363-7 (Version None)
Quarter: 2006Q4

REPORT INFORMATION
  Report Type: 
  Country: None (occurrence: None)
  Receive Date: 20061101
  Receipt Date: 20061025
  Transmission Date: 20070319
  Serious: Yes (Life-Threatening, Hospitalization)
  Sender: FDA-Public Use
  Company Number: 2006-149614-NL

PATIENT
  Age: 55 Year
  Sex: Female

DRUGS (6)
  1. ROCURONIUM BROMIDE [Suspect]
     Indication: GENERAL ANAESTHESIA
     Dosage: DF
  2. FENTANYL [Suspect]
     Indication: GENERAL ANAESTHESIA
     Dosage: DF
  3. PROPOFOL [Suspect]
     Indication: GENERAL ANAESTHESIA
     Dosage: DF
  4. NITROUS OXIDE W/ OXYGEN [Concomitant]
  5. ISOFLURANE [Concomitant]
  6. BROTIZOLAM [Concomitant]

REACTIONS (6)
  - APNOEA [None]
  - CARDIAC FAILURE CONGESTIVE [None]
  - CARDIOMYOPATHY [None]
  - ELECTROCARDIOGRAM QT PROLONGED [None]
  - ELECTROCARDIOGRAM ST SEGMENT ELEVATION [None]
  - SINUS TACHYCARDIA [None]
